FAERS Safety Report 15630642 (Version 1)
Quarter: 2018Q4

REPORT INFORMATION
  Report Type: Spontaneous
  Country: ZA (occurrence: ZA)
  Receive Date: 20181119
  Receipt Date: 20181119
  Transmission Date: 20190205
  Serious: Yes (Other)
  Sender: FDA-Public Use
  Company Number: ZA-LUPIN (EUROPE) LIMITED-2018-01196

PATIENT
  Sex: Female

DRUGS (5)
  1. ASPRIN BAYER [Suspect]
     Active Substance: ASPIRIN
     Indication: ANTIPLATELET THERAPY
     Dosage: 100 MG, UNK
     Route: 048
  2. ASPAVOR [Suspect]
     Active Substance: ATORVASTATIN
     Indication: BLOOD CHOLESTEROL ABNORMAL
     Dosage: 10 MG, UNK
     Route: 048
  3. LISORETIC 20/12,5 [Suspect]
     Active Substance: HYDROCHLOROTHIAZIDE\LISINOPRIL
     Indication: HYPERTENSION
     Dosage: 20/12.5MG
     Route: 048
  4. ZIABETA [Suspect]
     Active Substance: BISOPROLOL FUMARATE\HYDROCHLOROTHIAZIDE
     Indication: HYPERTENSION
     Dosage: 2.5/6.25MG
     Route: 048
  5. BROMAZEPAM SANDOZ [Suspect]
     Active Substance: BROMAZEPAM
     Indication: STRESS
     Dosage: 3 MG, UNK
     Route: 065

REACTIONS (1)
  - Bronchitis [Unknown]
